FAERS Safety Report 12979142 (Version 1)
Quarter: 2016Q4

REPORT INFORMATION
  Report Type: Spontaneous
  Country: FR (occurrence: FR)
  Receive Date: 20161128
  Receipt Date: 20161128
  Transmission Date: 20170207
  Serious: Yes (Congenital Anomaly, Other)
  Sender: FDA-Public Use
  Company Number: FR-GLAXOSMITHKLINE-FR2016GSK171276

PATIENT

DRUGS (2)
  1. LAMICTAL [Suspect]
     Active Substance: LAMOTRIGINE
     Indication: EPILEPSY
     Dosage: UNK
     Route: 064
  2. SPECIAFOLDINE [Concomitant]
     Active Substance: FOLIC ACID
     Dosage: 5 MG, QD
     Route: 064

REACTIONS (3)
  - Cleft lip and palate [Not Recovered/Not Resolved]
  - Maternal exposure before pregnancy [Unknown]
  - Exposure during pregnancy [Unknown]

NARRATIVE: CASE EVENT DATE: 2016
